FAERS Safety Report 8318866-1 (Version None)
Quarter: 2012Q2

REPORT INFORMATION
  Report Type: 
  Country: None (occurrence: None)
  Receive Date: 20120427
  Receipt Date: 20120423
  Transmission Date: 20120825
  Serious: Yes (Death, Disabling, Other)
  Sender: FDA-Public Use
  Company Number: US-BAYER-2012-031076

PATIENT
  Age: 65 Year
  Sex: Male

DRUGS (17)
  1. NEXAVAR [Suspect]
     Indication: RENAL CANCER
     Dosage: 400 MG, BID
     Route: 048
     Dates: start: 20120131
  2. ALOXI [Concomitant]
     Dosage: 0.25 MG IV EVERY 28 DAYS
     Route: 042
  3. ROXICODONE [Concomitant]
     Indication: PAIN
     Dosage: 2 TABLETS, Q4HR
     Route: 048
  4. ALBUTEROL [Concomitant]
     Indication: WHEEZING
     Dosage: 1 PUFF, Q4HR
     Route: 055
  5. LASIX [Concomitant]
     Dosage: 40 MG, QD
  6. MULTIPLE VITAMINS [Concomitant]
     Route: 048
  7. COMPAZINE [Concomitant]
     Dosage: 10 MG, QID
  8. DIOVAN [Concomitant]
     Dosage: 160 MG, QD
  9. AMBIEN [Concomitant]
     Dosage: 10 MG, HS
     Route: 048
  10. NEXAVAR [Suspect]
     Dosage: UNK
     Dates: end: 20120207
  11. CLEOCIN HYDROCHLORIDE [Concomitant]
     Dosage: UNK UNK, BID
     Route: 061
  12. ATIVAN [Concomitant]
     Indication: ANXIETY
     Dosage: 1 MG, PRN, EVERY 8 HOURS
  13. SILVADENE [Concomitant]
     Dosage: UNK UNK, PRN
     Route: 061
  14. ZOMETA [Concomitant]
     Dosage: 3 MG IV EVERY 28 DAYS
     Route: 042
  15. ZANTAC [Concomitant]
     Dosage: 150 MG, BID
     Route: 048
  16. GLYBURIDE [Concomitant]
     Dosage: 10 MG, UNK
     Route: 048
  17. FLONASE [Concomitant]
     Dosage: 1 SPRAY NASAL, QD
     Route: 045

REACTIONS (9)
  - MALAISE [None]
  - WEIGHT DECREASED [None]
  - DECREASED APPETITE [None]
  - RENAL CANCER [None]
  - HYPOGLYCAEMIA [None]
  - FATIGUE [None]
  - DIZZINESS [None]
  - DIARRHOEA [None]
  - LOSS OF CONSCIOUSNESS [None]
